FAERS Safety Report 20797243 (Version 4)
Quarter: 2023Q2

REPORT INFORMATION
  Report Type: Spontaneous
  Country: US (occurrence: US)
  Receive Date: 20220506
  Receipt Date: 20230425
  Transmission Date: 20230721
  Serious: No
  Sender: FDA-Public Use
  Company Number: US-PFIZER INC-202200258068

PATIENT
  Age: 73 Year
  Sex: Male

DRUGS (4)
  1. INLYTA [Suspect]
     Active Substance: AXITINIB
     Indication: Malignant melanoma
     Dosage: 5 MG, 2X/DAY
     Dates: start: 20220127
  2. INLYTA [Suspect]
     Active Substance: AXITINIB
     Dosage: 5 MG
     Dates: start: 20220131
  3. INLYTA [Suspect]
     Active Substance: AXITINIB
     Dosage: 5 MG
     Dates: start: 20220216
  4. INLYTA [Suspect]
     Active Substance: AXITINIB
     Dosage: 3 MG, 2X/DAY (THREE 1MG TABLETS BY MOUTH TWICE A DAY)
     Route: 048

REACTIONS (7)
  - Blood pressure increased [Unknown]
  - Abdominal discomfort [Unknown]
  - Night sweats [Unknown]
  - Diarrhoea [Not Recovered/Not Resolved]
  - Abdominal discomfort [Not Recovered/Not Resolved]
  - Protein urine present [Unknown]
  - Off label use [Unknown]

NARRATIVE: CASE EVENT DATE: 20220101
